FAERS Safety Report 13843675 (Version 1)
Quarter: 2017Q3

REPORT INFORMATION
  Report Type: Spontaneous
  Country: ES (occurrence: ES)
  Receive Date: 20170808
  Receipt Date: 20170808
  Transmission Date: 20171127
  Serious: Yes (Other)
  Sender: FDA-Public Use
  Company Number: ES-LPDUSPRD-20171071

PATIENT
  Age: 48 Year
  Sex: Female

DRUGS (1)
  1. FERINJECT [Suspect]
     Active Substance: FERRIC CARBOXYMALTOSE
     Route: 041
     Dates: start: 20170606, end: 20170606

REACTIONS (4)
  - Extrapyramidal disorder [Unknown]
  - Mydriasis [Unknown]
  - Muscle rigidity [Unknown]
  - Syncope [Unknown]

NARRATIVE: CASE EVENT DATE: 20170606
